FAERS Safety Report 4756166-7 (Version None)
Quarter: 2005Q3

REPORT INFORMATION
  Report Type: 
  Country: None (occurrence: None)
  Receive Date: 20050829
  Receipt Date: 20050829
  Transmission Date: 20060218
  Serious: Yes (Hospitalization)
  Sender: FDA-Public Use
  Company Number: None

PATIENT
  Age: 59 Year
  Sex: Male
  Weight: 100 kg

DRUGS (3)
  1. VYTORIN [Suspect]
     Indication: HYPERLIPIDAEMIA
  2. CYCLOSPORINE [Suspect]
     Indication: PROPHYLAXIS AGAINST TRANSPLANT REJECTION
  3. GEMFIBROZIL [Suspect]

REACTIONS (5)
  - ARTHRALGIA [None]
  - DRUG EFFECT DECREASED [None]
  - HYPERKALAEMIA [None]
  - MOBILITY DECREASED [None]
  - RHABDOMYOLYSIS [None]
